FAERS Safety Report 10622299 (Version 1)
Quarter: 2014Q4

REPORT INFORMATION
  Report Type: Report from Study
  Country: CA (occurrence: CA)
  Receive Date: 20141203
  Receipt Date: 20141203
  Transmission Date: 20150529
  Serious: Yes (Other)
  Sender: FDA-Public Use
  Company Number: CA-AMGEN-CANSL2014093075

PATIENT
  Age: 66 Year
  Sex: Female

DRUGS (1)
  1. PROLIA [Suspect]
     Active Substance: DENOSUMAB
     Indication: OSTEOPOROSIS POSTMENOPAUSAL
     Dosage: 60 MG, Q6MO
     Route: 058
     Dates: start: 20140630

REACTIONS (5)
  - Pyrexia [Unknown]
  - Anaphylactic shock [Unknown]
  - Dyspnoea [Unknown]
  - General physical health deterioration [Unknown]
  - Adverse reaction [Unknown]

NARRATIVE: CASE EVENT DATE: 20140630
